FAERS Safety Report 18032748 (Version 1)
Quarter: 2020Q3

REPORT INFORMATION
  Report Type: Spontaneous
  Country: US (occurrence: US)
  Receive Date: 20200716
  Receipt Date: 20200716
  Transmission Date: 20201103
  Serious: Yes (Hospitalization)
  Sender: FDA-Public Use
  Company Number: US-BAYER-2020-137942

PATIENT
  Age: 53 Year
  Sex: Male
  Weight: 111.57 kg

DRUGS (3)
  1. ADEMPAS [Suspect]
     Active Substance: RIOCIGUAT
     Dosage: UNK
  2. BOSENTAN. [Suspect]
     Active Substance: BOSENTAN
     Dosage: 125 MG
  3. WARFARIN [Concomitant]
     Active Substance: WARFARIN
     Dosage: UNK

REACTIONS (11)
  - Tremor [None]
  - Tremor [None]
  - Fall [Recovered/Resolved]
  - Product supply issue [None]
  - Dizziness [None]
  - Product dose omission issue [None]
  - Dyspnoea [None]
  - Fall [None]
  - Blood pressure decreased [None]
  - Dysarthria [None]
  - Dyskinesia [None]

NARRATIVE: CASE EVENT DATE: 2019
